FAERS Safety Report 23054097 (Version 1)
Quarter: 2023Q4

REPORT INFORMATION
  Report Type: Spontaneous
  Country: US (occurrence: None)
  Receive Date: 20231010
  Receipt Date: 20231010
  Transmission Date: 20240109
  Serious: Yes (Life-Threatening, Hospitalization, Disabling)
  Sender: FDA-Public Use
  Company Number: None

PATIENT
  Age: 20 Year
  Sex: Male
  Weight: 90 kg

DRUGS (2)
  1. ACCUTANE [Suspect]
     Active Substance: ISOTRETINOIN
     Indication: Acne
     Route: 048
     Dates: start: 20070501, end: 20070715
  2. CODEINE [Concomitant]
     Active Substance: CODEINE

REACTIONS (22)
  - Hypomania [None]
  - Crying [None]
  - Mood swings [None]
  - Feeling hot [None]
  - Fall [None]
  - Anxiety [None]
  - Anxiety [None]
  - Depression [None]
  - Thinking abnormal [None]
  - Psychotic disorder [None]
  - Imprisonment [None]
  - Tremor [None]
  - Nervous system disorder [None]
  - Impaired work ability [None]
  - Pain [None]
  - Schizophrenia [None]
  - Mania [None]
  - Bipolar disorder [None]
  - Suicidal behaviour [None]
  - Insomnia [None]
  - Drug resistance [None]
  - Feeling of despair [None]

NARRATIVE: CASE EVENT DATE: 20070801
